FAERS Safety Report 11785717 (Version 1)
Quarter: 2015Q4

REPORT INFORMATION
  Report Type: Spontaneous
  Country: None (occurrence: US)
  Receive Date: 20151130
  Receipt Date: 20151130
  Transmission Date: 20160305
  Serious: Yes (Other)
  Sender: FDA-Public Use
  Company Number: US-MEDAC PHARMA, INC.-1044753

PATIENT
  Age: 57 Year
  Sex: Female

DRUGS (1)
  1. RASUVO [Suspect]
     Active Substance: METHOTREXATE SODIUM

REACTIONS (8)
  - Feeling hot [Unknown]
  - Weight decreased [Unknown]
  - Decreased appetite [Unknown]
  - Feeling cold [Unknown]
  - Renal failure [Unknown]
  - Diarrhoea [Unknown]
  - Lethargy [Unknown]
  - Stomatitis [Unknown]
